FAERS Safety Report 7215677-5 (Version None)
Quarter: 2011Q1

REPORT INFORMATION
  Report Type: 
  Country: None (occurrence: None)
  Receive Date: 20110104
  Receipt Date: 20110104
  Transmission Date: 20110831
  Serious: No
  Sender: FDA-Public Use
  Company Number: None

PATIENT
  Age: 63 Year
  Sex: Male
  Weight: 65.7716 kg

DRUGS (1)
  1. COLGATE TOTAL ADVANCED CLEAN COLGATE-PALMOLIVE CO. [Suspect]
     Indication: DENTAL DISORDER PROPHYLAXIS
     Dosage: ONLY ONE DOSE/STRENGTH TWICE DAILY  DENTAL
     Route: 004
     Dates: start: 20101211, end: 20101225

REACTIONS (2)
  - CHEMICAL BURN OF GASTROINTESTINAL TRACT [None]
  - HYPOPHAGIA [None]
